FAERS Safety Report 8548719-5 (Version None)
Quarter: 2012Q3

REPORT INFORMATION
  Report Type: 
  Country: None (occurrence: None)
  Receive Date: 20120730
  Receipt Date: 20120723
  Transmission Date: 20120928
  Serious: Yes (Other)
  Sender: FDA-Public Use
  Company Number: PHEH2012US010455

PATIENT
  Sex: Male

DRUGS (3)
  1. COPAXONE [Concomitant]
  2. EXTAVIA [Suspect]
     Indication: MULTIPLE SCLEROSIS
     Dosage: 0.187 MG, QOD
     Route: 058
     Dates: start: 20120331, end: 20120615
  3. IBUPROFEN [Concomitant]

REACTIONS (6)
  - LIVER INJURY [None]
  - TRANSAMINASES INCREASED [None]
  - ALANINE AMINOTRANSFERASE INCREASED [None]
  - FEELING HOT [None]
  - CHILLS [None]
  - PAIN [None]
